FAERS Safety Report 15322525 (Version 1)
Quarter: 2018Q3

REPORT INFORMATION
  Report Type: Spontaneous
  Country: US (occurrence: US)
  Receive Date: 20180821
  Receipt Date: 20180821
  Transmission Date: 20181010
  Serious: Yes (Hospitalization)
  Sender: FDA-Public Use
  Company Number: None

PATIENT
  Age: 59 Year
  Sex: Male

DRUGS (9)
  1. PREDNISONE. [Concomitant]
     Active Substance: PREDNISONE
  2. FLUCONAZOLE. [Concomitant]
     Active Substance: FLUCONAZOLE
  3. MYCOPHEANOLATE [Concomitant]
  4. BACTRIM [Concomitant]
     Active Substance: SULFAMETHOXAZOLE\TRIMETHOPRIM
  5. GLECAPREVIR?PIBRENTASVIR [Suspect]
     Active Substance: GLECAPREVIR\PIBRENTASVIR
     Dosage: 100?40
     Route: 048
     Dates: start: 20180522
  6. FAMOTIDINE. [Concomitant]
     Active Substance: FAMOTIDINE
  7. TACROLIMUS. [Concomitant]
     Active Substance: TACROLIMUS
  8. TAMSULOSIN [Concomitant]
     Active Substance: TAMSULOSIN
  9. LORAZEPAM. [Concomitant]
     Active Substance: LORAZEPAM

REACTIONS (2)
  - Transplant rejection [None]
  - Kidney transplant rejection [None]

NARRATIVE: CASE EVENT DATE: 20180820
